FAERS Safety Report 9443503 (Version 2)
Quarter: 2013Q3

REPORT INFORMATION
  Report Type: Spontaneous
  Country: US (occurrence: US)
  Receive Date: 20130806
  Receipt Date: 20130822
  Transmission Date: 20140515
  Serious: Yes (Other)
  Sender: FDA-Public Use
  Company Number: CHPA2013US012188

PATIENT
  Age: 57 Year
  Sex: Female

DRUGS (3)
  1. CVS [Suspect]
     Indication: SMOKING CESSATION THERAPY
     Dosage: 21 MG, ONCE/SINGLE
     Route: 062
     Dates: start: 20130101, end: 20130101
  2. METFORMIN SANDOZ [Suspect]
     Indication: DIABETES MELLITUS
     Dosage: 2000 MG, QD
     Route: 048
     Dates: start: 201211
  3. INSULIN [Concomitant]
     Indication: DIABETES MELLITUS
     Dosage: 18 U, QD
     Dates: start: 201211

REACTIONS (2)
  - Mania [Recovered/Resolved]
  - Euphoric mood [Recovered/Resolved]
